FAERS Safety Report 20537106 (Version 2)
Quarter: 2022Q1

REPORT INFORMATION
  Report Type: Spontaneous
  Country: US (occurrence: US)
  Receive Date: 20220302
  Receipt Date: 20220318
  Transmission Date: 20220423
  Serious: No
  Sender: FDA-Public Use
  Company Number: US-009507513-2203USA000259

PATIENT
  Age: 70 Year
  Sex: Female

DRUGS (2)
  1. KEYTRUDA [Suspect]
     Active Substance: PEMBROLIZUMAB
     Indication: Endometrial cancer
     Dosage: UNK
     Dates: start: 20220201
  2. LENVATINIB MESYLATE [Suspect]
     Active Substance: LENVATINIB MESYLATE
     Indication: Endometrial cancer
     Dosage: 20 MILLIGRAM, QD
     Route: 048
     Dates: start: 20220201

REACTIONS (3)
  - Platelet count decreased [Recovered/Resolved]
  - Pruritus [Unknown]
  - Product dose omission issue [Unknown]

NARRATIVE: CASE EVENT DATE: 20220201
